FAERS Safety Report 7250362-5 (Version None)
Quarter: 2011Q1

REPORT INFORMATION
  Report Type: 
  Country: None (occurrence: None)
  Receive Date: 20110128
  Receipt Date: 20100322
  Transmission Date: 20110831
  Serious: No
  Sender: FDA-Public Use
  Company Number: A0848359A

PATIENT
  Age: 69 Year
  Sex: Female

DRUGS (4)
  1. HYDROCODONE [Concomitant]
  2. COMBIVIR [Suspect]
     Indication: HIV INFECTION
     Dosage: 1TAB TWICE PER DAY
     Route: 048
  3. VIRAMUNE [Concomitant]
  4. NEXIUM [Concomitant]

REACTIONS (5)
  - WHITE BLOOD CELL COUNT DECREASED [None]
  - ORAL PAIN [None]
  - GASTRIC DISORDER [None]
  - THERMAL BURN [None]
  - ORAL DISCOMFORT [None]
